FAERS Safety Report 12860286 (Version 3)
Quarter: 2016Q4

REPORT INFORMATION
  Report Type: Spontaneous
  Country: US (occurrence: US)
  Receive Date: 20161019
  Receipt Date: 20161121
  Transmission Date: 20170207
  Serious: Yes (Hospitalization, Other)
  Sender: FDA-Public Use
  Company Number: US-BELCHER PHARMACEUTICALS, LLC-2016VTS00198

PATIENT
  Age: 53 Year
  Sex: Female
  Weight: 57.14 kg

DRUGS (8)
  1. PANTOPRAZOLE [Concomitant]
     Active Substance: PANTOPRAZOLE SODIUM
  2. LINZESS [Concomitant]
     Active Substance: LINACLOTIDE
  3. MONTELUKAST [Concomitant]
     Active Substance: MONTELUKAST SODIUM
  4. RIZATRIPTAN ODT 10 MG TABLETS [Concomitant]
     Active Substance: RIZATRIPTAN
  5. METHADONE [Concomitant]
     Active Substance: METHADONE HYDROCHLORIDE
  6. OMNARIS [Concomitant]
     Active Substance: CICLESONIDE
  7. HYOSCYAMINE SULFATE SL [Suspect]
     Active Substance: HYOSCYAMINE SULFATE
     Indication: IRRITABLE BOWEL SYNDROME
     Dosage: 0.125 MG, 2X/DAY
     Route: 060
     Dates: end: 20160928
  8. ZOFRAN [Concomitant]
     Active Substance: ONDANSETRON HYDROCHLORIDE

REACTIONS (13)
  - Pancreatitis acute [Recovering/Resolving]
  - Cholecystectomy [Recovered/Resolved]
  - Photophobia [Unknown]
  - Cholelithiasis [Recovering/Resolving]
  - Dry mouth [Unknown]
  - Urinary retention [Recovering/Resolving]
  - Vision blurred [Recovering/Resolving]
  - Confusional state [Recovering/Resolving]
  - Headache [Unknown]
  - Pain [Recovered/Resolved]
  - Lipids increased [Recovering/Resolving]
  - Micturition urgency [Recovering/Resolving]
  - Irritability [Unknown]

NARRATIVE: CASE EVENT DATE: 2016
